FAERS Safety Report 9148190 (Version 1)
Quarter: 2013Q1

REPORT INFORMATION
  Report Type: Spontaneous
  Country: US (occurrence: US)
  Receive Date: 20130308
  Receipt Date: 20130308
  Transmission Date: 20140127
  Serious: No
  Sender: FDA-Public Use
  Company Number: US-BIOGENIDEC-2013BI020979

PATIENT
  Sex: Female

DRUGS (1)
  1. TYSABRI [Suspect]
     Indication: MULTIPLE SCLEROSIS
     Route: 042
     Dates: start: 20090112

REACTIONS (4)
  - Nervous system disorder [Not Recovered/Not Resolved]
  - Tooth repair [Unknown]
  - Multiple sclerosis relapse [Not Recovered/Not Resolved]
  - Dental caries [Not Recovered/Not Resolved]
